FAERS Safety Report 13387106 (Version 1)
Quarter: 2017Q1

REPORT INFORMATION
  Report Type: Spontaneous
  Country: US (occurrence: US)
  Receive Date: 20170330
  Receipt Date: 20170330
  Transmission Date: 20170429
  Serious: No
  Sender: FDA-Public Use
  Company Number: US-PERRIGO-16US014981

PATIENT
  Age: 53 Year
  Sex: Female
  Weight: 86.17 kg

DRUGS (4)
  1. CICLOPIROX. [Suspect]
     Active Substance: CICLOPIROX
     Indication: SEBORRHOEIC DERMATITIS
     Dosage: GENEROUS AMOUNT, QOD
     Route: 061
     Dates: start: 201503, end: 201601
  2. CLONIDINE. [Concomitant]
     Active Substance: CLONIDINE
     Indication: HYPERTENSION
  3. TOBRADEX [Concomitant]
     Active Substance: DEXAMETHASONE\TOBRAMYCIN
     Indication: OCULAR ROSACEA
  4. MINOCYCLINE [Concomitant]
     Active Substance: MINOCYCLINE\MINOCYCLINE HYDROCHLORIDE
     Indication: SEBORRHOEIC DERMATITIS

REACTIONS (2)
  - Inappropriate schedule of drug administration [Recovered/Resolved]
  - Drug ineffective [Unknown]

NARRATIVE: CASE EVENT DATE: 201503
